FAERS Safety Report 18956491 (Version 1)
Quarter: 2021Q1

REPORT INFORMATION
  Report Type: Report from Study
  Country: None (occurrence: CA)
  Receive Date: 20210301
  Receipt Date: 20210301
  Transmission Date: 20210420
  Serious: Yes (Other)
  Sender: FDA-Public Use
  Company Number: CA-ABBVIE-21K-028-3793251-00

PATIENT
  Sex: Male

DRUGS (1)
  1. HUMIRA [Suspect]
     Active Substance: ADALIMUMAB
     Indication: CROHN^S DISEASE
     Route: 058
     Dates: start: 20160208

REACTIONS (5)
  - Fibromyalgia [Not Recovered/Not Resolved]
  - Stenosis [Unknown]
  - Intervertebral disc degeneration [Not Recovered/Not Resolved]
  - Fall [Not Recovered/Not Resolved]
  - Hydrocephalus [Not Recovered/Not Resolved]
